FAERS Safety Report 4943856-6 (Version None)
Quarter: 2006Q1

REPORT INFORMATION
  Report Type: 
  Country: None (occurrence: None)
  Receive Date: 20060310
  Receipt Date: 20060308
  Transmission Date: 20060701
  Serious: No
  Sender: FDA-Public Use
  Company Number: FR-SHR-03-005440

PATIENT
  Age: 37 Year
  Sex: Female

DRUGS (1)
  1. MIRENA [Suspect]
     Indication: CONTRACEPTION
     Dosage: 20 UG, CONT, INTRA-UTERINE
     Route: 015
     Dates: start: 20021201

REACTIONS (4)
  - BREAST CANCER IN SITU [None]
  - BREAST MICROCALCIFICATION [None]
  - OESTROGEN RECEPTOR ASSAY POSITIVE [None]
  - PROGESTERONE RECEPTOR ASSAY POSITIVE [None]
